FAERS Safety Report 15960300 (Version 2)
Quarter: 2020Q2

REPORT INFORMATION
  Report Type: Spontaneous
  Country: US (occurrence: US)
  Receive Date: 20190214
  Receipt Date: 20200402
  Transmission Date: 20200713
  Serious: No
  Sender: FDA-Public Use
  Company Number: US-ROCHE-2214926

PATIENT
  Age: 65 Year
  Sex: Male

DRUGS (2)
  1. ERIVEDGE [Suspect]
     Active Substance: VISMODEGIB
     Indication: NEOPLASM MALIGNANT
     Route: 065
     Dates: start: 20180812
  2. ERIVEDGE [Suspect]
     Active Substance: VISMODEGIB
     Route: 048
     Dates: start: 201811

REACTIONS (10)
  - Decreased appetite [Unknown]
  - Blood disorder [Unknown]
  - Nausea [Unknown]
  - Rhinorrhoea [Unknown]
  - Decreased appetite [Unknown]
  - Muscle spasms [Unknown]
  - Body temperature decreased [Unknown]
  - Constipation [Unknown]
  - Taste disorder [Unknown]
  - Alopecia [Unknown]

NARRATIVE: CASE EVENT DATE: 20181112
